FAERS Safety Report 7934248-6 (Version None)
Quarter: 2011Q4

REPORT INFORMATION
  Report Type: 
  Country: None (occurrence: None)
  Receive Date: 20111122
  Receipt Date: 20111116
  Transmission Date: 20120403
  Serious: Yes (Other)
  Sender: FDA-Public Use
  Company Number: US-AMGEN-USASP2011060312

PATIENT
  Sex: Male

DRUGS (4)
  1. PRED FORTE [Concomitant]
  2. ENBREL [Suspect]
     Indication: PSORIATIC ARTHROPATHY
     Dosage: 50 MG, QWK
     Dates: start: 20071201, end: 20111001
  3. KETOROLAC TROMETHAMINE [Concomitant]
     Dosage: UNK %, UNK
  4. ENBREL [Suspect]
     Indication: PSORIASIS
     Dosage: 50 MG, QWK
     Dates: start: 20061201, end: 20111001

REACTIONS (2)
  - HERPES OPHTHALMIC [None]
  - CORNEAL GRAFT REJECTION [None]
